FAERS Safety Report 6252111-6 (Version None)
Quarter: 2009Q2

REPORT INFORMATION
  Report Type: 
  Country: None (occurrence: None)
  Receive Date: 20090630
  Receipt Date: 20041214
  Transmission Date: 20091009
  Serious: Yes (Hospitalization)
  Sender: FDA-Public Use
  Company Number: US-ROCHE-638984

PATIENT
  Sex: Male

DRUGS (22)
  1. ENFUVIRTIDE [Suspect]
     Route: 065
     Dates: start: 20030621, end: 20080814
  2. REYATAZ [Concomitant]
     Dosage: FREQUENCY: QD
     Dates: start: 20030621, end: 20080814
  3. REYATAZ [Concomitant]
     Dates: start: 20030721
  4. ZIAGEN [Concomitant]
     Dates: start: 20030621, end: 20080814
  5. ZIAGEN [Concomitant]
     Dates: start: 20030721
  6. LEVAQUIN [Concomitant]
     Dosage: FREQUENCY: QD
     Dates: start: 20031020, end: 20031101
  7. LEVAQUIN [Concomitant]
     Dosage: FREQUENCY: QD
     Dates: start: 20031028, end: 20031101
  8. LEVAQUIN [Concomitant]
     Dosage: FREQUENCY: QD
     Dates: start: 20031104, end: 20031107
  9. LEVAQUIN [Concomitant]
     Dates: start: 20040603, end: 20040601
  10. LEVAQUIN [Concomitant]
     Dosage: FREQUENCY: QD
     Dates: start: 20050208, end: 20050215
  11. LEVAQUIN [Concomitant]
     Dosage: FREQUENCY: QD
     Dates: start: 20070220, end: 20070101
  12. LEVAQUIN [Concomitant]
     Dosage: FREQUENCY: QD
     Dates: start: 20070621, end: 20070626
  13. CLINDAMYCIN [Concomitant]
     Dosage: FRWQUENCY: QID
     Dates: start: 20031104, end: 20031121
  14. ZITHROMAX [Concomitant]
     Dates: start: 20040426, end: 20040501
  15. ZITHROMAX [Concomitant]
     Dosage: STOP DATE: NOVEMBER 2004
     Dates: start: 20041118
  16. ZITHROMAX [Concomitant]
     Dates: start: 20060705, end: 20060701
  17. DOXYCYCLINE [Concomitant]
     Dates: start: 20050215, end: 20050225
  18. DOXYCYCLINE [Concomitant]
     Dates: start: 20050220, end: 20050225
  19. DOXYCYCLINE [Concomitant]
     Dates: start: 20070220, end: 20070302
  20. AUGMENTIN [Concomitant]
     Dates: start: 20070301, end: 20070311
  21. BACTRIM DS [Concomitant]
     Dosage: FREQUENCY: EOD
     Dates: end: 20060617
  22. FLUCONAZOLE [Concomitant]
     Dosage: FREQUENCY: QD
     Dates: end: 20080814

REACTIONS (6)
  - ANGINA PECTORIS [None]
  - CORONARY ARTERY DISEASE [None]
  - DIABETES MELLITUS [None]
  - HYPOGLYCAEMIA [None]
  - PANCREATIC INSUFFICIENCY [None]
  - PERIPHERAL VASCULAR DISORDER [None]
